FAERS Safety Report 19477518 (Version 1)
Quarter: 2021Q2

REPORT INFORMATION
  Report Type: Spontaneous
  Country: US (occurrence: US)
  Receive Date: 20210630
  Receipt Date: 20210630
  Transmission Date: 20210717
  Serious: No
  Sender: FDA-Public Use
  Company Number: None

PATIENT
  Age: 44 Year
  Sex: Female

DRUGS (2)
  1. CHLORTHALIDONE (CHLORTHALIDONE 25MG TAB) [Suspect]
     Active Substance: CHLORTHALIDONE
     Indication: HYPERTENSION
  2. DIPHENHYDRAMINE  (DIPHENHYDRAMINE HCL 25MG TAB) [Suspect]
     Active Substance: DIPHENHYDRAMINE HYDROCHLORIDE
     Indication: SINUSITIS

REACTIONS (2)
  - Self-injurious ideation [None]
  - Intentional overdose [None]

NARRATIVE: CASE EVENT DATE: 20210326
